FAERS Safety Report 6720225-X (Version None)
Quarter: 2010Q2

REPORT INFORMATION
  Report Type: 
  Country: None (occurrence: None)
  Receive Date: 20100511
  Receipt Date: 20100503
  Transmission Date: 20101027
  Serious: Yes (Death)
  Sender: FDA-Public Use
  Company Number: US-SANOFI-AVENTIS-2010SA026066

PATIENT
  Age: 79 Year
  Sex: Female

DRUGS (1)
  1. MULTAQ [Suspect]
     Indication: ATRIAL FIBRILLATION
     Route: 065

REACTIONS (4)
  - CARDIAC FAILURE [None]
  - MULTI-ORGAN FAILURE [None]
  - OFF LABEL USE [None]
  - RESPIRATORY FAILURE [None]
